FAERS Safety Report 17709620 (Version 1)
Quarter: 2020Q2

REPORT INFORMATION
  Report Type: Spontaneous
  Country: US (occurrence: US)
  Receive Date: 20200427
  Receipt Date: 20200427
  Transmission Date: 20200714
  Serious: Yes (Other)
  Sender: FDA-Public Use
  Company Number: US-009507513-2004USA006758

PATIENT
  Age: 79 Year
  Sex: Female

DRUGS (2)
  1. BCG LIVE [Suspect]
     Active Substance: BACILLUS CALMETTE-GUERIN SUBSTRAIN TICE LIVE ANTIGEN
     Indication: BLADDER CANCER
     Dosage: UNK
     Dates: start: 2015, end: 2018
  2. KEYTRUDA [Suspect]
     Active Substance: PEMBROLIZUMAB
     Indication: MALIGNANT NEOPLASM OF RENAL PELVIS
     Dosage: UNK
     Dates: start: 201910

REACTIONS (5)
  - Drug effective for unapproved indication [Unknown]
  - Post procedural complication [Unknown]
  - Product use in unapproved indication [Unknown]
  - Malignant neoplasm progression [Not Recovered/Not Resolved]
  - Malignant neoplasm progression [Not Recovered/Not Resolved]

NARRATIVE: CASE EVENT DATE: 2018
